FAERS Safety Report 16175178 (Version 3)
Quarter: 2023Q2

REPORT INFORMATION
  Report Type: Spontaneous
  Country: NL (occurrence: NL)
  Receive Date: 20190409
  Receipt Date: 20230412
  Transmission Date: 20230722
  Serious: Yes (Death, Disabling)
  Sender: FDA-Public Use
  Company Number: NL-002147023-PHHY2019NL079103

PATIENT
  Age: 29 Year
  Sex: Female

DRUGS (1)
  1. CLOZAPINE [Suspect]
     Active Substance: CLOZAPINE
     Indication: Schizophrenia
     Dosage: UNK
     Route: 065
     Dates: start: 2013

REACTIONS (4)
  - Diarrhoea [Fatal]
  - Gastroenteritis viral [Fatal]
  - Vomiting [Fatal]
  - Myocarditis [Fatal]

NARRATIVE: CASE EVENT DATE: 20130101
